FAERS Safety Report 6661533-0 (Version None)
Quarter: 2010Q1

REPORT INFORMATION
  Report Type: 
  Country: None (occurrence: None)
  Receive Date: 20100331
  Receipt Date: 20100324
  Transmission Date: 20100710
  Serious: Yes (Life-Threatening)
  Sender: FDA-Public Use
  Company Number: IT-PFIZER INC-2010016688

PATIENT
  Age: 33 Year
  Sex: Male

DRUGS (3)
  1. ARACYTIN [Suspect]
     Indication: ACUTE MYELOID LEUKAEMIA
     Dosage: 166 MG X DAY
     Route: 042
     Dates: start: 20090728, end: 20090803
  2. ZAVEDOS [Suspect]
     Indication: ACUTE MYELOID LEUKAEMIA
     Dosage: 17 MG X DAY
     Route: 042
     Dates: start: 20090728, end: 20090730
  3. AMPHOTERICINE B, LIPOSOME [Suspect]
     Indication: HYPERPYREXIA
     Dosage: 1 MG/M2, AS NEEDED
     Route: 042
     Dates: start: 20090701, end: 20090701

REACTIONS (6)
  - ABDOMINAL PAIN [None]
  - ANAPHYLACTOID REACTION [None]
  - BRONCHOSPASM [None]
  - DIARRHOEA [None]
  - HYPERPYREXIA [None]
  - STOMATITIS [None]
